FAERS Safety Report 14191613 (Version 1)
Quarter: 2017Q4

REPORT INFORMATION
  Report Type: Spontaneous
  Country: FR (occurrence: FR)
  Receive Date: 20171115
  Receipt Date: 20171115
  Transmission Date: 20180321
  Serious: Yes (Hospitalization)
  Sender: FDA-Public Use
  Company Number: FR-ASTRAZENECA-2017SF15913

PATIENT
  Age: 28287 Day
  Sex: Female

DRUGS (7)
  1. LOXAPAC [Suspect]
     Active Substance: LOXAPINE SUCCINATE
     Indication: DEPRESSION
     Route: 048
     Dates: end: 20150517
  2. MIANSERIN [Suspect]
     Active Substance: MIANSERIN
     Indication: DEPRESSION
     Route: 048
     Dates: end: 20150516
  3. IMOVANE [Concomitant]
     Active Substance: ZOPICLONE
  4. XEROQUEL [Suspect]
     Active Substance: QUETIAPINE FUMARATE
     Indication: DEPRESSION
     Route: 048
  5. SERESTA [Concomitant]
     Active Substance: OXAZEPAM
  6. LANSOPRAZOLE. [Concomitant]
     Active Substance: LANSOPRAZOLE
  7. OXINORMORO [Concomitant]

REACTIONS (3)
  - Urinary retention [Recovered/Resolved]
  - Faecaloma [Recovered/Resolved]
  - Extrapyramidal disorder [Not Recovered/Not Resolved]

NARRATIVE: CASE EVENT DATE: 20150514
